FAERS Safety Report 7796981-9 (Version None)
Quarter: 2011Q4

REPORT INFORMATION
  Report Type: 
  Country: None (occurrence: None)
  Receive Date: 20111005
  Receipt Date: 20111005
  Transmission Date: 20120403
  Serious: No
  Sender: FDA-Public Use
  Company Number: None

PATIENT
  Sex: Female
  Weight: 56.699 kg

DRUGS (2)
  1. VENLAFAXINE TABLETS [Concomitant]
     Dosage: 1 TABLET
     Route: 048
     Dates: start: 20110928, end: 20110929
  2. VENLAFAXINE [Suspect]
     Indication: DEPRESSION
     Dosage: 1 OR 2 TABLETS
     Route: 048
     Dates: start: 20110825, end: 20111004

REACTIONS (6)
  - NAUSEA [None]
  - HYPERHIDROSIS [None]
  - URTICARIA [None]
  - UNEVALUABLE EVENT [None]
  - VOMITING [None]
  - RASH [None]
